FAERS Safety Report 10048143 (Version 4)
Quarter: 2014Q2

REPORT INFORMATION
  Report Type: Report from Study
  Country: US (occurrence: US)
  Receive Date: 20140331
  Receipt Date: 20140617
  Transmission Date: 20141212
  Serious: Yes (Hospitalization)
  Sender: FDA-Public Use
  Company Number: US-JNJFOC-20140307616

PATIENT
  Age: 85 Year
  Sex: Male
  Weight: 59.9 kg

DRUGS (3)
  1. IBRUTINIB [Suspect]
     Route: 048
  2. IBRUTINIB [Suspect]
     Indication: B-CELL LYMPHOMA
     Route: 048
     Dates: start: 20140211, end: 20140308
  3. PLAQUENIL [Concomitant]
     Indication: SYSTEMIC LUPUS ERYTHEMATOSUS

REACTIONS (1)
  - Pleural effusion [Recovered/Resolved]
